FAERS Safety Report 6626013-7 (Version None)
Quarter: 2010Q1

REPORT INFORMATION
  Report Type: 
  Country: None (occurrence: None)
  Receive Date: 20100310
  Receipt Date: 20100225
  Transmission Date: 20100710
  Serious: Yes (Hospitalization, Other)
  Sender: FDA-Public Use
  Company Number: US-PFIZER INC-2009284196

PATIENT
  Sex: Male
  Weight: 87 kg

DRUGS (3)
  1. ZOLOFT [Suspect]
     Indication: DEPRESSION
     Dosage: 50 MG, 1X/DAY
     Route: 048
     Dates: start: 20090716, end: 20090915
  2. ZOLOFT [Suspect]
     Indication: SCHIZOPHRENIA
  3. RISPERDAL [Suspect]
     Indication: SCHIZOPHRENIA
     Dosage: 2 MG, 1X/DAY
     Route: 048
     Dates: start: 20090716, end: 20090815

REACTIONS (18)
  - ABDOMINAL PAIN [None]
  - AGITATION [None]
  - BRAIN INJURY [None]
  - CONFUSIONAL STATE [None]
  - DISORIENTATION [None]
  - DISTURBANCE IN ATTENTION [None]
  - ENTEROCOCCAL INFECTION [None]
  - FATIGUE [None]
  - FEELING ABNORMAL [None]
  - GAIT DISTURBANCE [None]
  - GENERAL PHYSICAL HEALTH DETERIORATION [None]
  - INSOMNIA [None]
  - KYPHOSCOLIOSIS [None]
  - LOSS OF CONSCIOUSNESS [None]
  - MEMORY IMPAIRMENT [None]
  - MENTAL STATUS CHANGES [None]
  - PAIN [None]
  - SCHIZOAFFECTIVE DISORDER [None]
